FAERS Safety Report 11185424 (Version 3)
Quarter: 2015Q3

REPORT INFORMATION
  Report Type: Spontaneous
  Country: US (occurrence: US)
  Receive Date: 20150612
  Receipt Date: 20150910
  Transmission Date: 20151125
  Serious: Yes (Death, Other)
  Sender: FDA-Public Use
  Company Number: US-009507513-1506USA006183

PATIENT
  Age: 57 Year
  Sex: Male

DRUGS (4)
  1. EMEND [Suspect]
     Active Substance: APREPITANT
     Indication: BRAIN NEOPLASM
     Dosage: UNK
     Route: 041
     Dates: start: 20150409
  2. ERBITUX [Concomitant]
     Active Substance: CETUXIMAB
     Dosage: UNK
  3. NORCO [Concomitant]
     Active Substance: ACETAMINOPHEN\HYDROCODONE BITARTRATE
     Dosage: UNK
  4. TAXOL [Concomitant]
     Active Substance: PACLITAXEL
     Dosage: UNK

REACTIONS (3)
  - Respiratory failure [Fatal]
  - Disease progression [Fatal]
  - Drug administration error [Unknown]

NARRATIVE: CASE EVENT DATE: 20150409
